FAERS Safety Report 4286690-5 (Version None)
Quarter: 2004Q1

REPORT INFORMATION
  Report Type: 
  Country: None (occurrence: None)
  Receive Date: 20040206
  Receipt Date: 20040127
  Transmission Date: 20041129
  Serious: Yes (Hospitalization)
  Sender: FDA-Public Use
  Company Number: FR-BRISTOL-MYERS SQUIBB COMPANY-12496642

PATIENT
  Age: 56 Year
  Sex: Female

DRUGS (2)
  1. HOLOXAN [Suspect]
     Indication: LUNG CARCINOMA CELL TYPE UNSPECIFIED STAGE 0
     Route: 042
     Dates: start: 20030414, end: 20030415
  2. ADRIAMYCIN PFS [Suspect]
     Indication: LUNG CARCINOMA CELL TYPE UNSPECIFIED STAGE 0
     Route: 042
     Dates: start: 20030414, end: 20030414

REACTIONS (1)
  - ENCEPHALOPATHY [None]
